FAERS Safety Report 9815050 (Version 2)
Quarter: 2018Q3

REPORT INFORMATION
  Report Type: Spontaneous
  Country: US (occurrence: US)
  Receive Date: 20140114
  Receipt Date: 20180713
  Transmission Date: 20181010
  Serious: No
  Sender: FDA-Public Use
  Company Number: US-009507513-1401USA003025

PATIENT
  Age: 27 Year
  Sex: Female

DRUGS (7)
  1. ZIDOVUDINE. [Suspect]
     Active Substance: ZIDOVUDINE
     Dosage: DAILY DOSE: 1
     Route: 042
  2. LAMIVUDINE AND ZIDOVUDINE [Suspect]
     Active Substance: LAMIVUDINE\ZIDOVUDINE
     Dosage: DAILY DOSE: 2
     Route: 048
  3. ZIDOVUDINE. [Suspect]
     Active Substance: ZIDOVUDINE
     Dosage: DAILY DOSE: 2
     Route: 042
  4. ABACAVIR. [Suspect]
     Active Substance: ABACAVIR
     Dosage: DAILY DOSE: 600
     Route: 048
  5. EMTRICITABINE (+) RILPIVIRINE HYDROCHLORIDE (+) TENOFOVIR DISOPROXIL F [Suspect]
     Active Substance: EMTRICITABINE\RILPIVIRINE HYDROCHLORIDE\TENOFOVIR DISOPROXIL FUMARATE
     Dosage: DAILY DOSE: 1
     Route: 048
  6. ISENTRESS [Suspect]
     Active Substance: RALTEGRAVIR POTASSIUM
     Dosage: DAILY DOSE: 800
     Route: 048
  7. TENOFOVIR [Suspect]
     Active Substance: TENOFOVIR

REACTIONS (1)
  - Maternal exposure during pregnancy [Recovered/Resolved]
